FAERS Safety Report 24955279 (Version 1)
Quarter: 2025Q1

REPORT INFORMATION
  Report Type: Spontaneous
  Country: US (occurrence: None)
  Receive Date: 20250210
  Receipt Date: 20250210
  Transmission Date: 20250409
  Serious: Yes (Life-Threatening, Hospitalization, Disabling, Other)
  Sender: FDA-CTU
  Company Number: None

PATIENT
  Age: 57 Year
  Sex: Male
  Weight: 85.5 kg

DRUGS (17)
  1. LIPITOR [Suspect]
     Active Substance: ATORVASTATIN CALCIUM
     Indication: Blood cholesterol increased
     Dates: start: 20000101, end: 20240901
  2. FLUVOXAMINE [Concomitant]
     Active Substance: FLUVOXAMINE
  3. GABAPENTIN [Concomitant]
     Active Substance: GABAPENTIN
  4. BUPROPION [Concomitant]
     Active Substance: BUPROPION
  5. CLONAZEPAM [Concomitant]
     Active Substance: CLONAZEPAM
  6. DEXTROAMPHETAMINE SACCHARATE, AMPHETAMINE ASPARTATE, DEXTROAMPHETAMINE [Concomitant]
     Active Substance: AMPHETAMINE ASPARTATE\AMPHETAMINE SULFATE\DEXTROAMPHETAMINE SACCHARATE\DEXTROAMPHETAMINE SULFATE
  7. METHYLPHENIDATE [Concomitant]
     Active Substance: METHYLPHENIDATE
  8. METFORMIN [Concomitant]
     Active Substance: METFORMIN HYDROCHLORIDE
  9. TRAZODONE [Concomitant]
     Active Substance: TRAZODONE HYDROCHLORIDE
  10. CREON [Concomitant]
     Active Substance: PANCRELIPASE AMYLASE\PANCRELIPASE LIPASE\PANCRELIPASE PROTEASE
  11. AMLODIPINE BESYLATE\BENAZEPRIL HYDROCHLORIDE [Concomitant]
     Active Substance: AMLODIPINE BESYLATE\BENAZEPRIL HYDROCHLORIDE
  12. VASCEPA [Concomitant]
     Active Substance: ICOSAPENT ETHYL
  13. EZETIMIBE [Concomitant]
     Active Substance: EZETIMIBE
  14. TAMSULOSIN [Concomitant]
     Active Substance: TAMSULOSIN
  15. TADALAFIL [Concomitant]
     Active Substance: TADALAFIL
  16. FAMOTIDINE [Concomitant]
     Active Substance: FAMOTIDINE
  17. VITAMINS [Concomitant]
     Active Substance: VITAMINS

REACTIONS (17)
  - Autism spectrum disorder [None]
  - Condition aggravated [None]
  - Irritability [None]
  - Aggression [None]
  - Stress [None]
  - Pancreatitis acute [None]
  - Metabolic dysfunction-associated liver disease [None]
  - Chronic kidney disease [None]
  - Headache [None]
  - Sleep disorder [None]
  - Hostility [None]
  - Anger [None]
  - Emotional distress [None]
  - Lipoprotein metabolism disorder [None]
  - Cognitive disorder [None]
  - Affect lability [None]
  - Abnormal behaviour [None]

NARRATIVE: CASE EVENT DATE: 20000101
